FAERS Safety Report 20852478 (Version 1)
Quarter: 2022Q2

REPORT INFORMATION
  Report Type: Spontaneous
  Country: US (occurrence: US)
  Receive Date: 20220520
  Receipt Date: 20220520
  Transmission Date: 20220721
  Serious: Yes (Disabling, Other)
  Sender: FDA-Public Use
  Company Number: US-GRANULES-US-2022GRALIT00119

PATIENT
  Age: 77 Year
  Sex: Female

DRUGS (4)
  1. SERTRALINE HYDROCHLORIDE [Suspect]
     Active Substance: SERTRALINE HYDROCHLORIDE
     Indication: Product used for unknown indication
     Route: 065
  2. TEPROTUMUMAB [Suspect]
     Active Substance: TEPROTUMUMAB
     Indication: Endocrine ophthalmopathy
     Route: 065
  3. METHIMAZOLE [Concomitant]
     Active Substance: METHIMAZOLE
     Indication: Basedow^s disease
     Route: 065
  4. METHYLPREDNISOLONE [Concomitant]
     Active Substance: METHYLPREDNISOLONE
     Indication: Product used for unknown indication
     Route: 065

REACTIONS (1)
  - Deafness neurosensory [Not Recovered/Not Resolved]
